FAERS Safety Report 7821789-5 (Version None)
Quarter: 2011Q4

REPORT INFORMATION
  Report Type: 
  Country: None (occurrence: None)
  Receive Date: 20111018
  Receipt Date: 20110512
  Transmission Date: 20120403
  Serious: No
  Sender: FDA-Public Use
  Company Number: US-ASTRAZENECA-2011SE28770

PATIENT
  Age: 65 Year
  Sex: Male
  Weight: 104.3 kg

DRUGS (4)
  1. SEROQUEL [Suspect]
     Indication: SLEEP DISORDER
     Route: 048
  2. SERTRALINE HYDROCHLORIDE [Concomitant]
     Indication: DEPRESSION
     Route: 048
  3. BENICAR [Concomitant]
     Indication: HYPERTENSION
     Route: 048
  4. SYMBICORT [Suspect]
     Indication: COUGH
     Route: 055

REACTIONS (5)
  - COUGH [None]
  - UPPER-AIRWAY COUGH SYNDROME [None]
  - PNEUMONIA [None]
  - DYSPNOEA [None]
  - OFF LABEL USE [None]
